FAERS Safety Report 7290338-5 (Version None)
Quarter: 2011Q1

REPORT INFORMATION
  Report Type: 
  Country: None (occurrence: None)
  Receive Date: 20110214
  Receipt Date: 20110131
  Transmission Date: 20110831
  Serious: Yes (Death)
  Sender: FDA-Public Use
  Company Number: JP-BAYER-200915370BYL

PATIENT
  Age: 64 Year
  Sex: Male
  Weight: 56 kg

DRUGS (8)
  1. NEXAVAR [Suspect]
     Dosage: 800 MG, QD
     Dates: start: 20090207, end: 20090605
  2. NEXAVAR [Suspect]
     Dosage: 400 MG (DAILY DOSE), QD, ORAL
     Route: 048
  3. NEXAVAR [Suspect]
     Dosage: 400 MG, QD
     Dates: start: 20081105, end: 20090106
  4. NEXAVAR [Suspect]
     Dosage: 400 MG, QD
     Dates: start: 20090606, end: 20090728
  5. NEXAVAR [Suspect]
     Indication: RENAL CELL CARCINOMA
     Dosage: 200 MG, QD
     Route: 048
     Dates: start: 20081008
  6. NEXAVAR [Suspect]
     Dosage: 400 MG, BID
     Route: 048
     Dates: start: 20081028, end: 20081104
  7. NEXAVAR [Suspect]
     Dosage: 600 MG, QD
     Dates: start: 20090729, end: 20091021
  8. NEXAVAR [Suspect]
     Dosage: 600 MG, QD
     Dates: start: 20090107, end: 20090206

REACTIONS (13)
  - MALAISE [None]
  - DIARRHOEA [None]
  - HYPERTENSION [None]
  - HYPOTHYROIDISM [None]
  - LIPASE INCREASED [None]
  - PALMAR-PLANTAR ERYTHRODYSAESTHESIA SYNDROME [None]
  - DYSPHONIA [None]
  - PLATELET COUNT DECREASED [None]
  - EPISTAXIS [None]
  - INTERSTITIAL LUNG DISEASE [None]
  - ANAEMIA [None]
  - BLOOD AMYLASE INCREASED [None]
  - RASH [None]
